FAERS Safety Report 20760912 (Version 3)
Quarter: 2022Q2

REPORT INFORMATION
  Report Type: Spontaneous
  Country: US (occurrence: US)
  Receive Date: 20220428
  Receipt Date: 20220531
  Transmission Date: 20220720
  Serious: Yes (Other)
  Sender: FDA-Public Use
  Company Number: US-ORGANON-O2204USA001996

PATIENT
  Sex: Female

DRUGS (12)
  1. FOLLISTIM AQ [Suspect]
     Active Substance: FOLLITROPIN
     Indication: In vitro fertilisation
     Dosage: INJECT UPTO 250 UNITS, DAILY, UNDER THE SKIN (SC D OR UTD BY PHYSICIAN) (STRENGTH: (DLVRING 600 IU)
     Route: 058
     Dates: start: 20211228
  2. FOLLISTIM AQ [Suspect]
     Active Substance: FOLLITROPIN
     Indication: Infertility female
  3. GANIRELIX ACETATE [Suspect]
     Active Substance: GANIRELIX ACETATE
     Indication: Infertility female
     Dosage: INJ 1 SYRINGE, SC OR UTD BY PHYSICIAN (STRENGTH 250 MCG/0.5 ML)
     Dates: start: 20211228
  4. FOLLISTIM [Concomitant]
     Active Substance: FOLLITROPIN
     Dosage: 600 UNITS
  5. FOLLISTIM [Concomitant]
     Active Substance: FOLLITROPIN
     Dosage: 300 UNITS
  6. GANIRELIX ACETATE [Concomitant]
     Active Substance: GANIRELIX ACETATE
     Dosage: 250 MICROGRAM
  7. PROGESTERONE [Concomitant]
     Active Substance: PROGESTERONE
     Dosage: 200 MILLIGRAM (PROGESTERONE IN OIL)
  8. ESTRADIOL [Concomitant]
     Active Substance: ESTRADIOL
     Dosage: 0.1 MILLIGRAM
  9. LETROZOLE [Concomitant]
     Active Substance: LETROZOLE
     Dosage: 2.5 MILLIGRAM
  10. GONADOTROPHIN, CHORIONIC [Concomitant]
     Active Substance: GONADOTROPHIN, CHORIONIC
     Dosage: 10000 UNIT
  11. AZITHROMYCIN [Concomitant]
     Active Substance: AZITHROMYCIN
     Dosage: 250 MILLIGRAM
  12. LUPRON [Concomitant]
     Active Substance: LEUPROLIDE ACETATE
     Dosage: 14 MG/ 2.8 ML

REACTIONS (1)
  - Maternal exposure during pregnancy [Unknown]
